FAERS Safety Report 13575383 (Version 2)
Quarter: 2017Q2

REPORT INFORMATION
  Report Type: Report from Study
  Country: AR (occurrence: AR)
  Receive Date: 20170524
  Receipt Date: 20170627
  Transmission Date: 20170830
  Serious: Yes (Other)
  Sender: FDA-Public Use
  Company Number: AR-ROCHE-1938699

PATIENT
  Sex: Male

DRUGS (1)
  1. XOLAIR [Suspect]
     Active Substance: OMALIZUMAB
     Indication: PRODUCT USED FOR UNKNOWN INDICATION
     Dosage: 2 AMPOULES OF 150 MG EACH, 2 EVERY MONTH.
     Route: 065
     Dates: start: 20161116, end: 20161117

REACTIONS (3)
  - Blood immunoglobulin E abnormal [Unknown]
  - Anaphylactic reaction [Recovered/Resolved]
  - Oedema [Recovered/Resolved]
